FAERS Safety Report 4400135-3 (Version None)
Quarter: 2004Q3

REPORT INFORMATION
  Report Type: 
  Country: None (occurrence: None)
  Receive Date: 20040716
  Receipt Date: 20040706
  Transmission Date: 20050211
  Serious: Yes (Other)
  Sender: FDA-Public Use
  Company Number: 2004212758US

PATIENT
  Age: 68 Year
  Sex: Female
  Weight: 55.8 kg

DRUGS (4)
  1. MYCOBUTIN [Suspect]
     Indication: TUBERCULOSIS
     Dosage: 150 MG, BID, MON, WED, FRI
     Dates: start: 20040422, end: 20040506
  2. BIAXIN [Concomitant]
  3. ETHAMBUTOL HCL [Concomitant]
  4. SYNTHROID [Concomitant]

REACTIONS (17)
  - ANOREXIA [None]
  - ARRHYTHMIA [None]
  - ASTHMA [None]
  - BEDRIDDEN [None]
  - BRONCHIECTASIS [None]
  - CYTOMEGALOVIRUS INFECTION [None]
  - DIFFICULTY IN WALKING [None]
  - DIZZINESS [None]
  - HEARING IMPAIRED [None]
  - INSOMNIA [None]
  - JAUNDICE [None]
  - MYCOBACTERIUM AVIUM COMPLEX INFECTION [None]
  - NAUSEA [None]
  - PAIN [None]
  - PULMONARY HAEMORRHAGE [None]
  - PYREXIA [None]
  - WEIGHT DECREASED [None]
